FAERS Safety Report 7223261-2 (Version None)
Quarter: 2011Q1

REPORT INFORMATION
  Report Type: 
  Country: None (occurrence: None)
  Receive Date: 20110112
  Receipt Date: 20100331
  Transmission Date: 20110831
  Serious: No
  Sender: FDA-Public Use
  Company Number: US-ALLERGAN-1004326US

PATIENT
  Age: 64 Year
  Sex: Female

DRUGS (4)
  1. SOOTHE [Concomitant]
     Indication: DRY EYE
     Dosage: 1 GTT, PRN
     Route: 047
     Dates: start: 20100301
  2. VITAMIN TAB [Concomitant]
  3. RESTASIS [Suspect]
     Indication: DRY EYE
     Dosage: 1 GTT, BID
     Route: 047
     Dates: start: 20100301
  4. FMLA? [Concomitant]

REACTIONS (3)
  - EYE PAIN [None]
  - BLISTER [None]
  - EYE PRURITUS [None]
